FAERS Safety Report 5541608-X (Version None)
Quarter: 2007Q4

REPORT INFORMATION
  Report Type: 
  Country: None (occurrence: None)
  Receive Date: 20071205
  Receipt Date: 20071205
  Transmission Date: 20080405
  Serious: Yes (Death, Hospitalization)
  Sender: FDA-Public Use
  Company Number: None

PATIENT
  Sex: Female
  Weight: 19.7 kg

DRUGS (7)
  1. BLEOMYCIN [Suspect]
     Dosage: 12 UNIT
  2. CYCLOPHOSPHAMIDE [Suspect]
     Dosage: 635 MG
  3. DOXORUBICIN HYDROCHLORIDE [Suspect]
     Dosage: 40 MG
  4. ETOPOSIDE [Suspect]
     Dosage: 300 MG
  5. G-CSF (FILGRASTIM, AMGEN) [Suspect]
     Dosage: 600 MG
  6. PREDNISONE [Suspect]
     Dosage: 220.5 MG
  7. VINCRISTINE SULFATE [Suspect]
     Dosage: 2.2 MG

REACTIONS (1)
  - DEATH [None]
